FAERS Safety Report 10354012 (Version 2)
Quarter: 2014Q3

REPORT INFORMATION
  Report Type: Report from Study
  Country: FR (occurrence: FR)
  Receive Date: 20140731
  Receipt Date: 20140731
  Transmission Date: 20150326
  Serious: Yes (Hospitalization)
  Sender: FDA-Public Use
  Company Number: FR-VERTEX PHARMACEUTICALS (CANADA)-AE-2011-004445

PATIENT
  Age: 45 Year
  Sex: Male
  Weight: 81 kg

DRUGS (13)
  1. COPEGUS [Suspect]
     Active Substance: RIBAVIRIN
     Indication: HEPATITIS C
     Dosage: DOSAGE FORM: UNSPECIFIED
     Route: 048
     Dates: start: 20110916, end: 20111218
  2. DAFALGAN [Concomitant]
     Active Substance: ACETAMINOPHEN
     Dosage: DOSAGE FORM: CAPSULE
  3. PEGASYS [Suspect]
     Active Substance: PEGINTERFERON ALFA-2A
     Indication: HEPATITIS C
     Dosage: DOSAGE FORM: UNSPECIFIED
     Route: 058
     Dates: start: 20110916, end: 20111118
  4. AERIUS [Concomitant]
     Active Substance: DESLORATADINE
     Indication: HYPERSENSITIVITY
     Dosage: DOSAGE FORM: TABLET, START DATE: AT THE END OF SEP-2011 OR IN EARLY OCT-2011
     Route: 048
  5. PEGASYS [Suspect]
     Active Substance: PEGINTERFERON ALFA-2A
     Dosage: DOSAGE FORM: UNSPECIFIED
     Route: 058
     Dates: start: 20111202, end: 20111218
  6. SEROPLEX [Concomitant]
     Active Substance: ESCITALOPRAM OXALATE
     Indication: DEPRESSION
     Dosage: DOSAGE FORM: TABLET, START DATE: AT THE END OF SEP-2011 OR IN EARLY OCT-2011
     Route: 048
     Dates: start: 20111011
  7. IMOVANE [Concomitant]
     Active Substance: ZOPICLONE
     Indication: INSOMNIA
     Dosage: DOSAGE FORM: TABLET
     Dates: start: 20110916
  8. PROCTOLOG [Concomitant]
     Active Substance: TRIMEBUTINE
     Indication: DIARRHOEA
  9. IMOVANE [Concomitant]
     Active Substance: ZOPICLONE
     Indication: DEPRESSION
  10. IMODIUM [Concomitant]
     Active Substance: LOPERAMIDE HYDROCHLORIDE
     Indication: DIARRHOEA
     Dosage: DOSAGE FORM: CAPSULE
  11. TELAPREVIR [Suspect]
     Active Substance: TELAPREVIR
     Indication: HEPATITIS C
     Dosage: 750 MG,
     Route: 048
     Dates: start: 20110916, end: 20111118
  12. SEROPLEX [Concomitant]
     Active Substance: ESCITALOPRAM OXALATE
     Indication: ANXIETY
  13. GLYCEROL\PARAFFIN [Concomitant]
     Active Substance: GLYCERIN\PARAFFIN
     Dosage: DOSAGE FORM: CREAM

REACTIONS (5)
  - Eczema [Recovering/Resolving]
  - Staphylococcal infection [Recovered/Resolved]
  - Vasculitis [Recovered/Resolved with Sequelae]
  - Purpura [Recovering/Resolving]
  - Purpura [Recovered/Resolved with Sequelae]

NARRATIVE: CASE EVENT DATE: 20111110
